FAERS Safety Report 5264448-8 (Version None)
Quarter: 2007Q1

REPORT INFORMATION
  Report Type: 
  Country: None (occurrence: None)
  Receive Date: 20070309
  Receipt Date: 20070228
  Transmission Date: 20070707
  Serious: Yes (Hospitalization)
  Sender: FDA-Public Use
  Company Number: 237527

PATIENT
  Age: 7 Year

DRUGS (2)
  1. XOLAIR [Suspect]
     Indication: DRUG USE FOR UNKNOWN INDICATION
  2. STEROID (NAME UNKNOWN) (STEROID NOS) [Concomitant]

REACTIONS (2)
  - RESPIRATORY DISORDER [None]
  - URTICARIA [None]
